FAERS Safety Report 8130023-0 (Version None)
Quarter: 2012Q1

REPORT INFORMATION
  Report Type: 
  Country: None (occurrence: None)
  Receive Date: 20120210
  Receipt Date: 20120203
  Transmission Date: 20120608
  Serious: Yes (Other)
  Sender: FDA-Public Use
  Company Number: CA-ABBOTT-12P-028-0901353-00

PATIENT
  Sex: Female
  Weight: 99.88 kg

DRUGS (4)
  1. HUMIRA [Suspect]
     Indication: PSORIATIC ARTHROPATHY
     Route: 058
     Dates: start: 20110715, end: 20120102
  2. LEFLUNOMIDE [Concomitant]
     Indication: PSORIATIC ARTHROPATHY
     Route: 048
  3. AZULFIDINE [Concomitant]
     Indication: PSORIATIC ARTHROPATHY
     Route: 048
  4. HYDROQUINONE [Concomitant]
     Indication: PSORIATIC ARTHROPATHY
     Route: 048

REACTIONS (1)
  - BONE FRAGMENTATION [None]
